FAERS Safety Report 16514592 (Version 1)
Quarter: 2019Q3

REPORT INFORMATION
  Report Type: Spontaneous
  Country: US (occurrence: US)
  Receive Date: 20190702
  Receipt Date: 20190702
  Transmission Date: 20191004
  Serious: No
  Sender: FDA-Public Use
  Company Number: US-DSJP-DSU-2019-124435

PATIENT

DRUGS (3)
  1. WELCHOL [Suspect]
     Active Substance: COLESEVELAM HYDROCHLORIDE
     Dosage: 1/4 DF, QD
     Route: 048
     Dates: start: 2018
  2. LYRICA [Concomitant]
     Active Substance: PREGABALIN
     Indication: BRAIN NEOPLASM
     Dosage: UNK
     Route: 048
  3. WELCHOL [Suspect]
     Active Substance: COLESEVELAM HYDROCHLORIDE
     Indication: DIARRHOEA
     Dosage: 1 DF, QD
     Route: 048
     Dates: start: 2014, end: 2018

REACTIONS (2)
  - Constipation [Unknown]
  - Off label use [Not Recovered/Not Resolved]

NARRATIVE: CASE EVENT DATE: 2014
